FAERS Safety Report 4749829-0 (Version None)
Quarter: 2005Q3

REPORT INFORMATION
  Report Type: 
  Country: None (occurrence: None)
  Receive Date: 20050819
  Receipt Date: 20050819
  Transmission Date: 20060218
  Serious: Yes (Other)
  Sender: FDA-Public Use
  Company Number: None

PATIENT
  Age: 52 Year
  Sex: Female
  Weight: 54 kg

DRUGS (1)
  1. VANCOMYCIN [Suspect]
     Dosage: 1000 MG EVERY 12 HRS IVPB
     Route: 042
     Dates: start: 20050725, end: 20050818

REACTIONS (1)
  - RASH [None]
